FAERS Safety Report 24360443 (Version 1)
Quarter: 2024Q3

REPORT INFORMATION
  Report Type: Spontaneous
  Country: US (occurrence: US)
  Receive Date: 20240925
  Receipt Date: 20240925
  Transmission Date: 20241017
  Serious: No
  Sender: BIOGEN
  Company Number: US-BIOGEN-2021BI00975006

PATIENT
  Sex: Female
  Weight: 22.7 kg

DRUGS (2)
  1. SPINRAZA [Suspect]
     Active Substance: NUSINERSEN
     Indication: Spinal muscular atrophy
     Route: 050
  2. SPINRAZA [Suspect]
     Active Substance: NUSINERSEN
     Dosage: PHYSICIAN TO ADMINISTER 12MG/5ML INTRATHECALLY GIVEN ONCE FOR 1 DOSE EVERY 4 MONTHS.
     Route: 050

REACTIONS (3)
  - Post lumbar puncture syndrome [Recovered/Resolved]
  - Epistaxis [Unknown]
  - Procedural nausea [Recovered/Resolved]
